FAERS Safety Report 4621533-9 (Version None)
Quarter: 2005Q1

REPORT INFORMATION
  Report Type: 
  Country: None (occurrence: None)
  Receive Date: 20050328
  Receipt Date: 20031125
  Transmission Date: 20050727
  Serious: No
  Sender: FDA-Public Use
  Company Number: 10095

PATIENT
  Age: 78 Year
  Sex: Female

DRUGS (10)
  1. METHOTREXATE [Suspect]
     Dosage: 5 MG WEEKLY
     Dates: start: 19900101, end: 20030101
  2. CALCIUM GLUCONATE [Concomitant]
  3. ETIDRONATE DISODIUM [Concomitant]
  4. FOLIC ACID [Concomitant]
  5. IPATROPIUM BROMIDE [Concomitant]
  6. IRBESARTAN - HYDROCHLOROTHIAZIDE [Concomitant]
  7. METHENAMINE HIPPURATE [Concomitant]
  8. PREDNISOLONE [Concomitant]
  9. SALBUTAMOL [Concomitant]
  10. TOLTERODINE TARTRATE [Concomitant]

REACTIONS (1)
  - ALVEOLITIS FIBROSING [None]
